FAERS Safety Report 20426815 (Version 1)
Quarter: 2022Q1

REPORT INFORMATION
  Report Type: Report from Study
  Country: US (occurrence: US)
  Receive Date: 20220204
  Receipt Date: 20220204
  Transmission Date: 20220424
  Serious: No
  Sender: FDA-Public Use
  Company Number: US-EXELIXIS-CABO-21046224

PATIENT
  Age: 61 Year
  Sex: Male

DRUGS (9)
  1. CABOMETYX [Suspect]
     Active Substance: CABOZANTINIB S-MALATE
     Indication: Renal cell carcinoma
     Dosage: 60 MG, QD
     Dates: start: 20211015, end: 20211125
  2. CABOMETYX [Suspect]
     Active Substance: CABOZANTINIB S-MALATE
     Dosage: 40 MG, QD
     Dates: start: 20211214
  3. OPDIVO [Concomitant]
     Active Substance: NIVOLUMAB
     Dosage: UNK Q3 TO 4 WEEKS
  4. ALLOPURINOL [Concomitant]
     Active Substance: ALLOPURINOL
  5. BENADRYL [Concomitant]
     Active Substance: DIPHENHYDRAMINE HYDROCHLORIDE
  6. DEXAMETHASONE [Concomitant]
     Active Substance: DEXAMETHASONE
  7. LEVOTHYROXINE [Concomitant]
     Active Substance: LEVOTHYROXINE
  8. TRAMADOL [Concomitant]
     Active Substance: TRAMADOL
  9. CLARITIN [Concomitant]
     Active Substance: LORATADINE

REACTIONS (7)
  - Oral herpes [Recovered/Resolved]
  - Thyroid function test abnormal [Recovering/Resolving]
  - Oral pain [Recovering/Resolving]
  - Skin ulcer [Recovered/Resolved]
  - Hepatic enzyme increased [Recovering/Resolving]
  - Pain in extremity [Recovering/Resolving]
  - Palmar-plantar erythrodysaesthesia syndrome [Unknown]

NARRATIVE: CASE EVENT DATE: 20211101
